FAERS Safety Report 10554009 (Version 1)
Quarter: 2014Q4

REPORT INFORMATION
  Report Type: Spontaneous
  Country: US (occurrence: None)
  Receive Date: 20141029
  Receipt Date: 20141029
  Transmission Date: 20150529
  Serious: Yes (Hospitalization)
  Sender: FDA-Public Use
  Company Number: None

PATIENT
  Age: 27 Year
  Sex: Male
  Weight: 87.7 kg

DRUGS (2)
  1. DOXORUBICIN [Suspect]
     Active Substance: DOXORUBICIN
     Dosage: 68 MG, OTHER
     Route: 042
     Dates: start: 20140716, end: 20140716
  2. CYCLOPHOSPHAMIDE. [Suspect]
     Active Substance: CYCLOPHOSPHAMIDE
     Indication: HODGKIN^S DISEASE
     Dosage: 2300 MG, OTHER
     Route: 042
     Dates: start: 20140716, end: 20140716

REACTIONS (5)
  - Submandibular mass [None]
  - Malaise [None]
  - Thrombocytopenia [None]
  - Neutropenia [None]
  - Headache [None]

NARRATIVE: CASE EVENT DATE: 20140724
